FAERS Safety Report 15962635 (Version 1)
Quarter: 2019Q1

REPORT INFORMATION
  Report Type: Spontaneous
  Country: IT (occurrence: IT)
  Receive Date: 20190214
  Receipt Date: 20190214
  Transmission Date: 20190417
  Serious: Yes (Other)
  Sender: FDA-Public Use
  Company Number: IT-PFIZER INC-2019063427

PATIENT
  Age: 48 Year
  Sex: Female

DRUGS (3)
  1. LORAZEPAM. [Suspect]
     Active Substance: LORAZEPAM
     Dosage: UNK, (TOTAL)
     Route: 048
     Dates: start: 20190116, end: 20190116
  2. ZOLPIDEM [Suspect]
     Active Substance: ZOLPIDEM\ZOLPIDEM TARTRATE
     Dosage: UNK (TOTAL)
     Route: 048
     Dates: start: 20190116, end: 20190116
  3. DUROGESIC [Suspect]
     Active Substance: FENTANYL
     Dosage: 3 DF, SINGLE (TOTAL)
     Route: 062
     Dates: start: 20190116, end: 20190116

REACTIONS (3)
  - Intentional overdose [Unknown]
  - Coma [Unknown]
  - Intentional self-injury [Unknown]

NARRATIVE: CASE EVENT DATE: 20190116
